FAERS Safety Report 7479336-6 (Version None)
Quarter: 2011Q2

REPORT INFORMATION
  Report Type: 
  Country: None (occurrence: None)
  Receive Date: 20110513
  Receipt Date: 20110510
  Transmission Date: 20111010
  Serious: Yes (Other)
  Sender: FDA-Public Use
  Company Number: US-BAYER-2011-040648

PATIENT
  Sex: Female

DRUGS (2)
  1. YAZ [Suspect]
     Dosage: UNK
     Dates: start: 20080101, end: 20090911
  2. YASMIN [Suspect]
     Dosage: UNK
     Dates: start: 20080101, end: 20090911

REACTIONS (2)
  - GALLBLADDER DISORDER [None]
  - INJURY [None]
